FAERS Safety Report 10232715 (Version 1)
Quarter: 2014Q2

REPORT INFORMATION
  Report Type: Spontaneous
  Country: US (occurrence: US)
  Receive Date: 20140612
  Receipt Date: 20140612
  Transmission Date: 20141212
  Serious: Yes (Hospitalization)
  Sender: FDA-Public Use
  Company Number: US-ASTRAZENECA-2014SE39534

PATIENT
  Age: 53 Year
  Sex: Female
  Weight: 81.6 kg

DRUGS (6)
  1. SEROQUEL [Suspect]
     Route: 048
     Dates: start: 2009, end: 201404
  2. SEROQUEL [Suspect]
     Route: 048
     Dates: start: 2009, end: 201404
  3. SEROQUEL [Suspect]
     Route: 048
     Dates: start: 2014
  4. SEROQUEL [Suspect]
     Route: 048
     Dates: start: 2014
  5. DILANTIN [Concomitant]
     Dosage: DAILY
     Route: 048
     Dates: start: 1989
  6. PHENOBARBITAL [Concomitant]
     Indication: CONVULSION
     Dosage: DAILY
     Route: 048
     Dates: start: 1974

REACTIONS (4)
  - Pneumonia [Unknown]
  - Emotional disorder [Unknown]
  - Drug withdrawal syndrome [Unknown]
  - Intentional product misuse [Unknown]
